FAERS Safety Report 8389718-6 (Version None)
Quarter: 2012Q1

REPORT INFORMATION
  Report Type: 
  Country: None (occurrence: None)
  Receive Date: 20120323
  Receipt Date: 20110318
  Transmission Date: 20120608
  Serious: Yes (Other)
  Sender: FDA-Public Use
  Company Number: 163-21880-11032263

PATIENT
  Age: 67 Year
  Sex: Female
  Weight: 86.1834 kg

DRUGS (8)
  1. FOLIC ACID (FOLIC ACID) (UNKNOWN) [Concomitant]
  2. RISPERIDONE [Concomitant]
  3. PRILOSEC (OMEPRAZOLE) (UNKNOWN) [Concomitant]
  4. REVLIMID [Suspect]
     Indication: MYELODYSPLASTIC SYNDROME
     Dosage: 15 MG, 1 IN 1 D, PO
     Route: 048
     Dates: start: 20110222
  5. DEXAMETHASONE [Concomitant]
  6. LEXAPRO (ESCITALOPRAM OXALATE) (UNKNOWN) [Concomitant]
  7. LORAZEPAM [Concomitant]
  8. CLINDAMYCIN HCL [Concomitant]

REACTIONS (4)
  - ANAEMIA [None]
  - NEUTROPENIA [None]
  - THROMBOCYTOPENIA [None]
  - EAR INFECTION [None]
